FAERS Safety Report 5146744-8 (Version None)
Quarter: 2006Q4

REPORT INFORMATION
  Report Type: 
  Country: None (occurrence: None)
  Receive Date: 20061107
  Receipt Date: 20061107
  Transmission Date: 20070319
  Serious: Yes (Hospitalization)
  Sender: FDA-Public Use
  Company Number: None

PATIENT
  Age: 57 Year
  Sex: Male
  Weight: 70.8 kg

DRUGS (5)
  1. WARFARIN SODIUM [Suspect]
     Dosage: 10 MG QD BY MOUTH
     Route: 048
     Dates: start: 20060801, end: 20060807
  2. DIGOXIN [Concomitant]
  3. FUROSEMIDE [Concomitant]
  4. LISINOPRIL [Concomitant]
  5. NICOTINE 7MG/24HT TRANSDERMAL PATCH [Concomitant]

REACTIONS (1)
  - INTERNATIONAL NORMALISED RATIO INCREASED [None]
